FAERS Safety Report 8343994-4 (Version None)
Quarter: 2012Q2

REPORT INFORMATION
  Report Type: 
  Country: None (occurrence: None)
  Receive Date: 20120508
  Receipt Date: 20120430
  Transmission Date: 20120825
  Serious: Yes (Hospitalization, Other)
  Sender: FDA-Public Use
  Company Number: CH-PFIZER INC-2012106675

PATIENT
  Age: 47 Year
  Sex: Male
  Weight: 65 kg

DRUGS (8)
  1. CEVIMELINE [Concomitant]
     Indication: DRY MOUTH
  2. LOSARTAN [Concomitant]
     Indication: HYPERTENSION
     Dosage: 100 MG, UNK
  3. HYALURONAN [Concomitant]
     Indication: SJOGREN'S SYNDROME
     Dosage: UNK
  4. FINGOLIMOD [Suspect]
     Indication: MULTIPLE SCLEROSIS
     Dosage: UNK
     Dates: start: 20100101
  5. AMLODIPINE [Concomitant]
     Indication: HYPERTENSION
     Dosage: 5 MG, UNK
  6. CELECOXIB [Suspect]
     Indication: PSORIASIS
     Dosage: UNK
  7. HYDROCHLOROTHIAZIDE [Concomitant]
     Indication: HYPERTENSION
     Dosage: 12.5 MG, UNK
  8. HYALURONAN [Concomitant]
     Indication: EYE DISORDER

REACTIONS (7)
  - PULMONARY HYPERTENSION [None]
  - LEFT VENTRICULAR DYSFUNCTION [None]
  - ENDOCARDITIS [None]
  - ANGINA PECTORIS [None]
  - MITRAL VALVE INCOMPETENCE [None]
  - CARDIAC FAILURE CONGESTIVE [None]
  - ATRIAL FIBRILLATION [None]
